FAERS Safety Report 8880091 (Version 1)
Quarter: 2012Q4

REPORT INFORMATION
  Report Type: 
  Country: US (occurrence: US)
  Receive Date: 20121101
  Receipt Date: 20121101
  Transmission Date: 20130627
  Serious: No
  Sender: FDA-Public Use
  Company Number: US-TARO-2011P1009238

PATIENT
  Sex: Male

DRUGS (2)
  1. PHENYTOIN SODIUM EXTENDED CAPSULES USP 100MG [Suspect]
  2. DILANTIN (PHENYTOIN SODIUM) [Suspect]
     Dates: start: 1978

REACTIONS (1)
  - Insomnia [Unknown]
